FAERS Safety Report 9536503 (Version 1)
Quarter: 2013Q3

REPORT INFORMATION
  Report Type: Spontaneous
  Country: US (occurrence: None)
  Receive Date: 20130917
  Receipt Date: 20130917
  Transmission Date: 20140515
  Serious: Yes (Disabling, Other)
  Sender: FDA-Public Use
  Company Number: None

PATIENT
  Age: 59 Year
  Sex: Female
  Weight: 98.43 kg

DRUGS (2)
  1. VIBRYD [Suspect]
     Indication: DEPRESSION
     Dosage: 1 PILL, ONCE DAILY
     Route: 048
  2. DEPLIN [Suspect]
     Dosage: 1 PILL, ONCE DAILY
     Route: 048

REACTIONS (6)
  - Weight increased [None]
  - Suicidal ideation [None]
  - Mania [None]
  - Insomnia [None]
  - Conversion disorder [None]
  - Speech disorder [None]
